FAERS Safety Report 7249864-7 (Version None)
Quarter: 2011Q1

REPORT INFORMATION
  Report Type: 
  Country: None (occurrence: None)
  Receive Date: 20110128
  Receipt Date: 20100630
  Transmission Date: 20110831
  Serious: No
  Sender: FDA-Public Use
  Company Number: A0867924A

PATIENT
  Sex: Male

DRUGS (2)
  1. NO CONCURRENT MEDICATION [Concomitant]
  2. BUPROPION HYDROCHLORIDE [Suspect]
     Dosage: 150MG PER DAY
     Route: 048

REACTIONS (1)
  - DRUG SCREEN POSITIVE [None]
